FAERS Safety Report 5857935-2 (Version None)
Quarter: 2008Q3

REPORT INFORMATION
  Report Type: 
  Country: None (occurrence: None)
  Receive Date: 20080826
  Receipt Date: 20080821
  Transmission Date: 20090109
  Serious: Yes (Death, Other)
  Sender: FDA-Public Use
  Company Number: US-ASTRAZENECA-2008UW08596

PATIENT
  Age: 13698 Day
  Sex: Male
  Weight: 129.3 kg

DRUGS (4)
  1. SEROQUEL [Suspect]
     Indication: ANXIETY
     Dosage: 300-600 MG
     Route: 048
     Dates: start: 20050101, end: 20080101
  2. SEROQUEL [Suspect]
     Indication: DEPRESSION
     Dosage: 300-600 MG
     Route: 048
     Dates: start: 20050101, end: 20080101
  3. SEROQUEL [Suspect]
     Indication: SCHIZOPHRENIA
     Dosage: 300-600 MG
     Route: 048
     Dates: start: 20050101, end: 20080101
  4. SEROQUEL [Suspect]
     Indication: INSOMNIA
     Dosage: 300-600 MG
     Route: 048
     Dates: start: 20050101, end: 20080101

REACTIONS (4)
  - DEATH [None]
  - DIABETES MELLITUS [None]
  - KETOACIDOSIS [None]
  - PANCREATITIS [None]
